FAERS Safety Report 5900944-5 (Version None)
Quarter: 2008Q3

REPORT INFORMATION
  Report Type: 
  Country: None (occurrence: None)
  Receive Date: 20080929
  Receipt Date: 20080918
  Transmission Date: 20090109
  Serious: Yes (Other)
  Sender: FDA-Public Use
  Company Number: US-ASTRAZENECA-2008UW19464

PATIENT
  Age: 54 Year
  Sex: Female
  Weight: 110.2 kg

DRUGS (7)
  1. CRESTOR [Suspect]
     Indication: BLOOD CHOLESTEROL INCREASED
     Route: 048
  2. INSULIN [Concomitant]
  3. COUMADIN [Concomitant]
  4. ALBUTEROL [Concomitant]
  5. PREDNISONE TAB [Concomitant]
  6. STARLIX [Concomitant]
  7. DIGOXIN [Concomitant]

REACTIONS (6)
  - COLITIS [None]
  - FATIGUE [None]
  - HEADACHE [None]
  - HEART RATE INCREASED [None]
  - MALAISE [None]
  - NAUSEA [None]
